FAERS Safety Report 8374631-0 (Version None)
Quarter: 2012Q2

REPORT INFORMATION
  Report Type: 
  Country: None (occurrence: None)
  Receive Date: 20120521
  Receipt Date: 20120411
  Transmission Date: 20120825
  Serious: No
  Sender: FDA-Public Use
  Company Number: US-ASTRAZENECA-2012SE23852

PATIENT
  Sex: Female

DRUGS (4)
  1. PRILOSEC OTC [Suspect]
     Indication: GASTROOESOPHAGEAL REFLUX DISEASE
     Route: 048
     Dates: start: 20120404, end: 20120409
  2. PRILOSEC OTC [Suspect]
     Indication: DIARRHOEA
     Route: 048
     Dates: start: 20120404, end: 20120409
  3. PRILOSEC OTC [Suspect]
     Route: 048
     Dates: start: 20120410, end: 20120410
  4. PRILOSEC OTC [Suspect]
     Route: 048
     Dates: start: 20120410, end: 20120410

REACTIONS (4)
  - DECREASED APPETITE [None]
  - ABDOMINAL PAIN UPPER [None]
  - OFF LABEL USE [None]
  - INAPPROPRIATE SCHEDULE OF DRUG ADMINISTRATION [None]
